FAERS Safety Report 7561879-8 (Version None)
Quarter: 2011Q2

REPORT INFORMATION
  Report Type: 
  Country: None (occurrence: None)
  Receive Date: 20110621
  Receipt Date: 20110609
  Transmission Date: 20111010
  Serious: Yes (Hospitalization, Other)
  Sender: FDA-Public Use
  Company Number: PHHY2011US51384

PATIENT
  Sex: Male

DRUGS (8)
  1. PROGRAF [Concomitant]
  2. VALCYTE [Concomitant]
  3. MAGNESIA [Concomitant]
  4. PREDNISONE TAB [Concomitant]
     Dosage: 2 MG, QD
  5. MYFORTIC [Suspect]
     Indication: HEART TRANSPLANT
     Dosage: 360 MG, BID
  6. OTC [Concomitant]
  7. ASPIRIN [Concomitant]
  8. PRILOSEC [Concomitant]

REACTIONS (4)
  - CYTOMEGALOVIRUS INFECTION [None]
  - INFLUENZA [None]
  - MALAISE [None]
  - NERVE INJURY [None]
